FAERS Safety Report 16950212 (Version 5)
Quarter: 2020Q1

REPORT INFORMATION
  Report Type: Spontaneous
  Country: US (occurrence: US)
  Receive Date: 20191023
  Receipt Date: 20200106
  Transmission Date: 20200409
  Serious: No
  Sender: FDA-Public Use
  Company Number: US-PFIZER INC-2019181371

PATIENT
  Age: 67 Year
  Sex: Male
  Weight: 74 kg

DRUGS (3)
  1. GABAPENTIN. [Suspect]
     Active Substance: GABAPENTIN
     Indication: CARDIOVASCULAR DISORDER
     Dosage: 600 MG, DAILY [300 MG 2]
     Dates: start: 2004
  2. GABAPENTIN. [Suspect]
     Active Substance: GABAPENTIN
     Indication: LYME DISEASE
  3. GABAPENTIN. [Suspect]
     Active Substance: GABAPENTIN
     Indication: NEUROPATHY PERIPHERAL
     Dosage: 300 MG, 1X/DAY
     Route: 048

REACTIONS (2)
  - Off label use [Unknown]
  - Drug ineffective for unapproved indication [Unknown]
